FAERS Safety Report 24005152 (Version 1)
Quarter: 2024Q2

REPORT INFORMATION
  Report Type: Spontaneous
  Country: US (occurrence: None)
  Receive Date: 20240621
  Receipt Date: 20240621
  Transmission Date: 20240716
  Serious: Yes (Hospitalization)
  Sender: FDA-Public Use
  Company Number: None

PATIENT
  Sex: Female

DRUGS (10)
  1. TOBRAMYCIN [Suspect]
     Active Substance: TOBRAMYCIN\TOBRAMYCIN SULFATE
     Indication: Bacterial infection
     Dosage: FREQUENCY : TWICE A DAY;?OTHER ROUTE : VIA NEBULIZER;?
     Route: 050
  2. ALBUTEROL SUL [Concomitant]
  3. CLARITIN [Concomitant]
  4. FLUTICASONE [Concomitant]
  5. PROBIOTIC CHW [Concomitant]
  6. SODIUM CHLORIDE [Concomitant]
     Active Substance: SODIUM CHLORIDE
  7. SPIRIVA AER [Concomitant]
  8. VITAMIN C CHW [Concomitant]
  9. VITAMIN D3 CHW [Concomitant]
  10. ZYRTEC CHILD [Concomitant]

REACTIONS (1)
  - Infection [None]
